FAERS Safety Report 6223155-5 (Version None)
Quarter: 2009Q2

REPORT INFORMATION
  Report Type: 
  Country: None (occurrence: None)
  Receive Date: 20090611
  Receipt Date: 20090603
  Transmission Date: 20091009
  Serious: Yes (Hospitalization, Other)
  Sender: FDA-Public Use
  Company Number: PHHY2009FR21858

PATIENT
  Age: 42 Year
  Sex: Female

DRUGS (1)
  1. VOLTAREN [Suspect]
     Dosage: 75 MG PER DAY

REACTIONS (6)
  - ANXIETY [None]
  - ASCITES [None]
  - PERFORATED ULCER [None]
  - PERITONITIS [None]
  - PLEURAL EFFUSION [None]
  - SURGERY [None]
